FAERS Safety Report 16442531 (Version 4)
Quarter: 2021Q2

REPORT INFORMATION
  Report Type: Spontaneous
  Country: US (occurrence: US)
  Receive Date: 20190617
  Receipt Date: 20210426
  Transmission Date: 20210716
  Serious: No
  Sender: FDA-Public Use
  Company Number: US-PFIZER INC-2018489115

PATIENT
  Age: 59 Year
  Sex: Male

DRUGS (4)
  1. VFEND [Interacting]
     Active Substance: VORICONAZOLE
     Indication: ASPERGILLUS INFECTION
     Dosage: 200 MG, 2X/DAY (TAKE 1 TABLET BY MOUTH EVERY 12 HOURS, QTY 160, DAY SUPPLY 60)
     Route: 048
  2. FLOMAX [Interacting]
     Active Substance: TAMSULOSIN HYDROCHLORIDE
     Dosage: UNK
  3. VFEND [Suspect]
     Active Substance: VORICONAZOLE
     Indication: PULMONARY SARCOIDOSIS
     Dosage: 200 MG, 2X/DAY (1 TABLET EVERY 12 HOURS)
     Route: 048
     Dates: start: 20181120
  4. VFEND [Interacting]
     Active Substance: VORICONAZOLE
     Indication: LUNG TRANSPLANT
     Dosage: 50 MG, 2X/DAY
     Route: 048

REACTIONS (4)
  - Product prescribing error [Unknown]
  - Off label use [Unknown]
  - Product use in unapproved indication [Unknown]
  - Drug interaction [Unknown]
